FAERS Safety Report 14603430 (Version 1)
Quarter: 2018Q1

REPORT INFORMATION
  Report Type: Spontaneous
  Country: US (occurrence: US)
  Receive Date: 20180305
  Receipt Date: 20180305
  Transmission Date: 20180509
  Serious: Yes (Death)
  Sender: FDA-Public Use
  Company Number: None

PATIENT
  Age: 78 Year
  Sex: Male
  Weight: 137.8 kg

DRUGS (1)
  1. DAPTOMYCIN. [Suspect]
     Active Substance: DAPTOMYCIN
     Indication: PNEUMONIA
     Route: 040
     Dates: start: 20171228, end: 20180111

REACTIONS (4)
  - Dyspnoea [None]
  - Eosinophilic pneumonia [None]
  - Hypoxia [None]
  - Respiratory failure [None]

NARRATIVE: CASE EVENT DATE: 20171229
